FAERS Safety Report 6897887-X (Version None)
Quarter: 2010Q3

REPORT INFORMATION
  Report Type: 
  Country: None (occurrence: None)
  Receive Date: 20100729
  Receipt Date: 20100719
  Transmission Date: 20110219
  Serious: Yes (Hospitalization, Disabling, Other)
  Sender: FDA-Public Use
  Company Number: 10JP001353

PATIENT
  Sex: Male

DRUGS (4)
  1. VALPROIC ACID [Suspect]
     Indication: TONIC CONVULSION
     Dosage: 25 MG/KG, QD
  2. VITAMIN B6 [Concomitant]
  3. PHENYTOIN [Concomitant]
  4. CLOBAZAM (CLOBAZAM) [Concomitant]

REACTIONS (11)
  - CEREBRAL PALSY [None]
  - EPILEPSY [None]
  - FANCONI SYNDROME [None]
  - HYPOXIC-ISCHAEMIC ENCEPHALOPATHY [None]
  - INFANTILE SPASMS [None]
  - LARGE FOR DATES BABY [None]
  - NEONATAL ASPHYXIA [None]
  - OEDEMA [None]
  - PROTEINURIA [None]
  - RENAL TUBULAR DISORDER [None]
  - SEVERE MENTAL RETARDATION [None]
